FAERS Safety Report 13614261 (Version 2)
Quarter: 2019Q1

REPORT INFORMATION
  Report Type: Report from Study
  Country: GB (occurrence: GB)
  Receive Date: 20170606
  Receipt Date: 20190127
  Transmission Date: 20190417
  Serious: Yes (Other)
  Sender: FDA-Public Use
  Company Number: GB-BRISTOL-MYERS SQUIBB COMPANY-BMS-2017-048420

PATIENT
  Sex: Female

DRUGS (1)
  1. ABATACEPT [Suspect]
     Active Substance: ABATACEPT
     Indication: RHEUMATOID ARTHRITIS
     Dosage: 125 MG, ONCE WEEKLY
     Route: 058
     Dates: start: 20170526

REACTIONS (6)
  - Wound [Unknown]
  - Rash [Unknown]
  - Feeling abnormal [Unknown]
  - Poor quality product administered [Unknown]
  - Diarrhoea [Unknown]
  - Surgery [Unknown]
